FAERS Safety Report 12549286 (Version 1)
Quarter: 2016Q3

REPORT INFORMATION
  Report Type: Report from Study
  Country: US (occurrence: US)
  Receive Date: 20160712
  Receipt Date: 20160712
  Transmission Date: 20161109
  Serious: Yes (Other)
  Sender: FDA-Public Use
  Company Number: GXBR2016US002230

PATIENT
  Sex: Female

DRUGS (2)
  1. DESMOPRESSIN [Concomitant]
     Active Substance: DESMOPRESSIN
     Indication: DIABETES INSIPIDUS
     Dosage: UNK DF, UNK
     Route: 065
  2. OMNITROPE [Suspect]
     Active Substance: SOMATROPIN
     Indication: HYPOPITUITARISM
     Dosage: 0.6 MG, QD
     Route: 065

REACTIONS (4)
  - Urine output increased [Not Recovered/Not Resolved]
  - Seizure [Not Recovered/Not Resolved]
  - Viral infection [Not Recovered/Not Resolved]
  - Pollakiuria [Not Recovered/Not Resolved]
